FAERS Safety Report 25735599 (Version 1)
Quarter: 2025Q3

REPORT INFORMATION
  Report Type: Spontaneous
  Country: CA (occurrence: CA)
  Receive Date: 20250828
  Receipt Date: 20250828
  Transmission Date: 20251020
  Serious: Yes (Other)
  Sender: TEVA
  Company Number: CA-TEVA-VS-3366753

PATIENT
  Age: 46 Year
  Sex: Female
  Weight: 83 kg

DRUGS (1)
  1. LISDEXAMFETAMINE [Suspect]
     Active Substance: LISDEXAMFETAMINE
     Indication: Attention deficit hyperactivity disorder
     Dosage: TEVA-LISDEXAMFETAMINE
     Route: 048

REACTIONS (5)
  - Malaise [Recovered/Resolved]
  - Anxiety [Recovered/Resolved]
  - Disturbance in attention [Recovered/Resolved]
  - Brain fog [Recovered/Resolved]
  - Product substitution issue [Recovered/Resolved]
